FAERS Safety Report 4576785-0 (Version None)
Quarter: 2005Q1

REPORT INFORMATION
  Report Type: 
  Country: None (occurrence: None)
  Receive Date: 20050207
  Receipt Date: 20050124
  Transmission Date: 20050727
  Serious: Yes (Hospitalization)
  Sender: FDA-Public Use
  Company Number: 2005019463

PATIENT
  Age: 72 Year
  Sex: Male
  Weight: 81.6475 kg

DRUGS (4)
  1. VIAGRA [Suspect]
     Indication: ERECTILE DYSFUNCTION
     Dosage: (50 MG), ORAL
     Route: 048
     Dates: end: 20050101
  2. MORPHINE SULFATE [Suspect]
     Indication: PAIN
     Dates: start: 20020101
  3. ALKA-SELTZER (ACETYLSALICYLIC ACID, CITRIC ACID, SODIUM BICARBONATE) [Suspect]
     Indication: ABDOMINAL DISTENSION
     Dosage: ORAL
     Route: 048
     Dates: start: 20020101
  4. OTHER ANTIDIARRHOEALS (OTHER ANTIDIARRHOEALS) [Suspect]
     Indication: DIARRHOEA
     Dosage: ORAL
     Route: 048
     Dates: start: 20020101

REACTIONS (11)
  - ABDOMINAL DISTENSION [None]
  - ANOREXIA [None]
  - BLOOD URINE PRESENT [None]
  - CHEST PAIN [None]
  - COUGH [None]
  - DIARRHOEA [None]
  - DRUG INEFFECTIVE [None]
  - HAEMATOCHEZIA [None]
  - HYPERSENSITIVITY [None]
  - NASOPHARYNGITIS [None]
  - VOMITING [None]
